FAERS Safety Report 8158930-3 (Version None)
Quarter: 2012Q1

REPORT INFORMATION
  Report Type: 
  Country: None (occurrence: None)
  Receive Date: 20120223
  Receipt Date: 20120220
  Transmission Date: 20120608
  Serious: Yes (Life-Threatening, Hospitalization)
  Sender: FDA-Public Use
  Company Number: US-SANOFI-AVENTIS-2011SA076847

PATIENT
  Age: 63 Year
  Sex: Female

DRUGS (8)
  1. DOCETAXEL [Suspect]
     Indication: BREAST CANCER
     Dosage: OVER 1 HR ON DAY 1 AFTER DOXIL COMPLETION, EVERY 21 DAYS FOR 8 CYCLES
     Route: 042
     Dates: start: 20020621
  2. DOXORUBICIN HCL [Suspect]
     Indication: BREAST CANCER
     Dosage: 10-500 ML/HR ON DAY 1, EVERY 21 DAYS FOR 8 CYCLES (MAX CUMULATIVE DOSE 24 MG/M2)
     Route: 042
     Dates: start: 20020621
  3. TRASTUZUMAB [Suspect]
     Indication: BREAST CANCER
     Route: 065
  4. GLUCOTROL [Concomitant]
     Indication: DIABETES MELLITUS
  5. PYRIDOXINE HCL [Suspect]
     Indication: BREAST CANCER
     Dosage: STARTING ON DAY 1 FOR AS LOMG AS DOXIL IS ADMINISTERED
     Route: 048
     Dates: start: 20020621
  6. DEXAMETHASONE [Suspect]
     Route: 065
  7. PREDNISONE [Concomitant]
     Dosage: TAPERING DOSE
  8. HUMULIN R [Concomitant]
     Indication: DIABETES MELLITUS

REACTIONS (2)
  - INFECTION [None]
  - HYPERGLYCAEMIA [None]
